FAERS Safety Report 14565711 (Version 2)
Quarter: 2018Q1

REPORT INFORMATION
  Report Type: Spontaneous
  Country: CN (occurrence: CN)
  Receive Date: 20180223
  Receipt Date: 20180312
  Transmission Date: 20180509
  Serious: Yes (Hospitalization)
  Sender: FDA-Public Use
  Company Number: CN-ROCHE-2073078

PATIENT
  Age: 47 Year
  Sex: Female

DRUGS (7)
  1. HERCEPTIN [Suspect]
     Active Substance: TRASTUZUMAB
     Indication: BREAST CANCER
     Route: 041
     Dates: start: 20170302
  2. HERCEPTIN [Suspect]
     Active Substance: TRASTUZUMAB
     Route: 041
     Dates: start: 20180201, end: 20180201
  3. DOCETAXEL. [Concomitant]
     Active Substance: DOCETAXEL
     Dosage: 4 CYCLES OF TREATMENT
     Route: 065
     Dates: start: 20170302
  4. HERCEPTIN [Suspect]
     Active Substance: TRASTUZUMAB
     Route: 041
     Dates: end: 201801
  5. CARBOPLATIN. [Concomitant]
     Active Substance: CARBOPLATIN
  6. CYCLOPHOSPHAMIDE. [Concomitant]
     Active Substance: CYCLOPHOSPHAMIDE
  7. EPIRUBICIN [Concomitant]
     Active Substance: EPIRUBICIN

REACTIONS (3)
  - Cardiac failure acute [Recovering/Resolving]
  - Underdose [Unknown]
  - Pericardial effusion [Recovering/Resolving]

NARRATIVE: CASE EVENT DATE: 201802
